FAERS Safety Report 19020389 (Version 1)
Quarter: 2021Q1

REPORT INFORMATION
  Report Type: Spontaneous
  Country: GB (occurrence: GB)
  Receive Date: 20210317
  Receipt Date: 20210317
  Transmission Date: 20210420
  Serious: Yes (Other)
  Sender: FDA-Public Use
  Company Number: NVSC2021GB060646

PATIENT
  Age: 82 Year
  Sex: Male

DRUGS (1)
  1. ZOLEDRONIC ACID [Suspect]
     Active Substance: ZOLEDRONIC ACID
     Indication: PRODUCT USED FOR UNKNOWN INDICATION
     Dosage: UNK (1ST INFUSION)
     Route: 042
     Dates: start: 201607

REACTIONS (2)
  - Oroantral fistula [Recovering/Resolving]
  - Drug intolerance [Unknown]
